FAERS Safety Report 11010308 (Version 1)
Quarter: 2015Q2

REPORT INFORMATION
  Report Type: Spontaneous
  Country: BR (occurrence: BR)
  Receive Date: 20150410
  Receipt Date: 20150410
  Transmission Date: 20150821
  Serious: Yes (Hospitalization, Other)
  Sender: FDA-Public Use
  Company Number: BR-BAYER-2015-009186

PATIENT
  Sex: Female

DRUGS (1)
  1. YASMIN [Suspect]
     Active Substance: DROSPIRENONE\ETHINYL ESTRADIOL
     Dosage: 1 DF, QD
     Route: 048
     Dates: start: 2006

REACTIONS (12)
  - Cerebrovascular accident [Recovered/Resolved with Sequelae]
  - Hemiparesis [Recovered/Resolved with Sequelae]
  - Speech disorder [Recovered/Resolved with Sequelae]
  - Headache [Recovered/Resolved with Sequelae]
  - Epilepsy [Not Recovered/Not Resolved]
  - Vomiting [Recovered/Resolved with Sequelae]
  - Nausea [Recovered/Resolved with Sequelae]
  - Obesity [Not Recovered/Not Resolved]
  - Depression [Not Recovered/Not Resolved]
  - Cerebral thrombosis [Recovered/Resolved with Sequelae]
  - Coma [Recovered/Resolved with Sequelae]
  - Hypertension [Not Recovered/Not Resolved]

NARRATIVE: CASE EVENT DATE: 20110122
